FAERS Safety Report 9407308 (Version 4)
Quarter: 2015Q4

REPORT INFORMATION
  Report Type: Report from Study
  Country: US (occurrence: US)
  Receive Date: 20130718
  Receipt Date: 20151016
  Transmission Date: 20160305
  Serious: Yes (Disabling, Other)
  Sender: FDA-Public Use
  Company Number: US-ROCHE-1248529

PATIENT
  Age: 36 Year
  Sex: Male

DRUGS (10)
  1. LUCENTIS [Suspect]
     Active Substance: RANIBIZUMAB
     Indication: DIABETIC RETINOPATHY
     Dosage: RIGHT EYE
     Route: 050
  2. VIGAMOX [Concomitant]
     Active Substance: MOXIFLOXACIN HYDROCHLORIDE
  3. METFORMIN [Concomitant]
     Active Substance: METFORMIN HYDROCHLORIDE
     Dosage: WITH MEAL
     Route: 065
  4. NEVANAC [Concomitant]
     Active Substance: NEPAFENAC
  5. LUCENTIS [Suspect]
     Active Substance: RANIBIZUMAB
     Indication: DIABETIC EYE DISEASE
  6. NOVOLOG [Concomitant]
     Active Substance: INSULIN ASPART
     Dosage: 10 UNITS QD
     Route: 065
  7. LUCENTIS [Suspect]
     Active Substance: RANIBIZUMAB
     Indication: DIABETIC RETINOPATHY
     Dosage: ALTERNATING EYES
     Route: 050
     Dates: start: 20121017
  8. REFRESH OPTIVE SENSITIVE PRESERVATIVE-FREE LUBRICANT EYE DROPS [Concomitant]
  9. LUCENTIS [Suspect]
     Active Substance: RANIBIZUMAB
     Indication: DIABETIC RETINAL OEDEMA
     Dosage: RIGHT EYE
     Route: 050
     Dates: start: 20130108
  10. INSULIN ASPART [Concomitant]
     Active Substance: INSULIN ASPART

REACTIONS (15)
  - Blindness [Unknown]
  - Retinal exudates [Unknown]
  - Diabetic retinopathy [Unknown]
  - Iris neovascularisation [Unknown]
  - Cataract [Unknown]
  - Vitreous adhesions [Unknown]
  - Retinal detachment [Unknown]
  - Cataract [Unknown]
  - Visual acuity reduced [Unknown]
  - Retinopathy [Unknown]
  - Iris adhesions [Unknown]
  - Vitreous haemorrhage [Unknown]
  - Retinal tear [Unknown]
  - Diplopia [Recovering/Resolving]
  - Blindness unilateral [Unknown]

NARRATIVE: CASE EVENT DATE: 20121219
